FAERS Safety Report 10211181 (Version 1)
Quarter: 2014Q2

REPORT INFORMATION
  Report Type: Spontaneous
  Country: US (occurrence: US)
  Receive Date: 20140602
  Receipt Date: 20140602
  Transmission Date: 20141212
  Serious: No
  Sender: FDA-Public Use
  Company Number: US-ABBVIE-13P-163-1123574-00

PATIENT
  Sex: Female

DRUGS (2)
  1. MARINOL [Suspect]
     Indication: NAUSEA
     Dosage: 5 AND 10 MG
  2. MARINOL [Suspect]
     Indication: VOMITING

REACTIONS (2)
  - Malaise [Unknown]
  - Drug effect decreased [Unknown]
